FAERS Safety Report 13828805 (Version 7)
Quarter: 2020Q1

REPORT INFORMATION
  Report Type: Report from Study
  Country: JP (occurrence: JP)
  Receive Date: 20170803
  Receipt Date: 20200129
  Transmission Date: 20200409
  Serious: Yes (Hospitalization, Other)
  Sender: FDA-Public Use
  Company Number: JP-ASTELLAS-2017JP001686

PATIENT
  Age: 44 Year
  Sex: Female

DRUGS (48)
  1. TACROLIMUS. [Suspect]
     Active Substance: TACROLIMUS
     Route: 048
     Dates: start: 20090625
  2. TACROLIMUS. [Suspect]
     Active Substance: TACROLIMUS
     Route: 048
     Dates: start: 20130404
  3. PREDNISOLONE. [Suspect]
     Active Substance: PREDNISOLONE
     Dosage: 13 MG/DAY, UNKNOWN FREQ.
     Route: 048
     Dates: start: 20091111
  4. PREDNISOLONE. [Suspect]
     Active Substance: PREDNISOLONE
     Dosage: 10 MG/DAY, UNKNOWN FREQ.
     Route: 048
     Dates: start: 20100825
  5. PREDNISOLONE. [Suspect]
     Active Substance: PREDNISOLONE
     Dosage: 15 MG,/DAY, UNKNOWN FREQ.
     Route: 048
     Dates: start: 20130826
  6. PREDNISOLONE. [Suspect]
     Active Substance: PREDNISOLONE
     Dosage: 30 MG/DAY, UNKNOWN FREQ.
     Route: 048
     Dates: start: 20161226
  7. PREDONINE [Concomitant]
     Active Substance: PREDNISOLONE
     Dosage: 10 MG/DAY, UNKNOWN FREQ.
     Route: 048
     Dates: start: 20171104, end: 20180107
  8. DAIPHEN [Concomitant]
     Active Substance: SULFAMETHOXAZOLE\TRIMETHOPRIM
     Indication: PROPHYLAXIS
     Dosage: 1 DF/DAY, UNKNOWN FREQ.
     Route: 048
     Dates: start: 20170307
  9. TACROLIMUS. [Suspect]
     Active Substance: TACROLIMUS
     Route: 048
     Dates: start: 20120704
  10. PREDNISOLONE. [Suspect]
     Active Substance: PREDNISOLONE
     Indication: PLEURISY
     Dosage: 15 MG/DAY, UNKNOWN FREQ.
     Route: 048
     Dates: start: 20090722
  11. PREDNISOLONE. [Suspect]
     Active Substance: PREDNISOLONE
     Dosage: 25 MG/DAY, UNKNOWN FREQ.
     Route: 048
     Dates: start: 20121122
  12. PREDNISOLONE. [Suspect]
     Active Substance: PREDNISOLONE
     Dosage: 40 MG/DAY, UNKNOWN FREQ.
     Route: 048
     Dates: start: 20170303, end: 20170306
  13. PREDONINE [Concomitant]
     Active Substance: PREDNISOLONE
     Indication: PLEURISY
     Dosage: 20 MG/DAY, UNKNOWN FREQ.
     Route: 048
     Dates: start: 20170614, end: 20170706
  14. NEXIUM [Concomitant]
     Active Substance: ESOMEPRAZOLE MAGNESIUM
     Indication: GASTRITIS PROPHYLAXIS
     Dosage: 20 MG/DAY, UNKNOWN FREQ.
     Route: 048
     Dates: start: 20170313
  15. TACROLIMUS. [Suspect]
     Active Substance: TACROLIMUS
     Indication: LUPUS NEPHRITIS
     Route: 048
     Dates: start: 20090525
  16. TACROLIMUS. [Suspect]
     Active Substance: TACROLIMUS
     Route: 048
     Dates: start: 20131019
  17. PREDNISOLONE. [Suspect]
     Active Substance: PREDNISOLONE
     Dosage: 11 MG/DAY, UNKNOWN FREQ.
     Route: 048
     Dates: start: 20100604
  18. PREDNISOLONE. [Suspect]
     Active Substance: PREDNISOLONE
     Dosage: 3 MG/DAY, UNKNOWN FREQ.
     Route: 048
     Dates: start: 20180110, end: 20180312
  19. PREDNISOLONE. [Suspect]
     Active Substance: PREDNISOLONE
     Indication: LUPUS NEPHRITIS
     Dosage: 16 MG/DAY, UNKNOWN FREQ.
     Route: 048
  20. PREDNISOLONE. [Suspect]
     Active Substance: PREDNISOLONE
     Dosage: 12.5 MG/DAY, UNKNOWN FREQ.
     Route: 048
     Dates: start: 20150117
  21. PREDONINE [Concomitant]
     Active Substance: PREDNISOLONE
     Indication: LUPUS NEPHRITIS
     Dosage: 40 MG/DAY, UNKNOWN FREQ.
     Route: 048
     Dates: start: 20170307, end: 20170613
  22. FUROSEMIDE. [Concomitant]
     Active Substance: FUROSEMIDE
     Dosage: 40 MG/DAY, UNKNOWN FREQ.
     Route: 048
     Dates: start: 20170619, end: 20171012
  23. FUROSEMIDE. [Concomitant]
     Active Substance: FUROSEMIDE
     Dosage: 20 MG/DAY, UNKNOWN FREQ.
     Route: 048
     Dates: start: 20171013, end: 20171212
  24. LASIX [Concomitant]
     Active Substance: FUROSEMIDE
     Dosage: 10 MG/DAY, UNKNOWN FREQ.
     Route: 048
     Dates: start: 20170119
  25. PREDNISOLONE. [Suspect]
     Active Substance: PREDNISOLONE
     Dosage: 18 MG/DAY, UNKNOWN FREQ.
     Route: 048
     Dates: start: 20130404
  26. PREDNISOLONE. [Suspect]
     Active Substance: PREDNISOLONE
     Dosage: 16 MG/DAY, UNKNOWN FREQ.
     Route: 048
     Dates: start: 20130629
  27. PREDONINE [Concomitant]
     Active Substance: PREDNISOLONE
     Dosage: 5 MG/DAY, UNKNOWN FREQ.
     Route: 048
     Dates: start: 20180110
  28. TACROLIMUS. [Suspect]
     Active Substance: TACROLIMUS
     Route: 048
     Dates: start: 20120416
  29. PREDNISOLONE. [Suspect]
     Active Substance: PREDNISOLONE
     Dosage: 30 MG/DAY, UNKNOWN FREQ.
     Route: 048
     Dates: start: 20121010
  30. PREDNISOLONE. [Suspect]
     Active Substance: PREDNISOLONE
     Dosage: 27.5 MG/DAY, UNKNOWN FREQ.
     Route: 048
     Dates: start: 20121107
  31. PREDNISOLONE. [Suspect]
     Active Substance: PREDNISOLONE
     Dosage: 20 MG/DAY, UNKNOWN FREQ.
     Route: 048
     Dates: start: 20130128
  32. PREDNISOLONE. [Suspect]
     Active Substance: PREDNISOLONE
     Dosage: 25 MG/DAY, UNKNOWN FREQ.
     Route: 048
     Dates: start: 20170127
  33. PREDNISOLONE. [Suspect]
     Active Substance: PREDNISOLONE
     Dosage: 2 MG/DAY, UNKNOWN FREQ.
     Route: 048
     Dates: start: 20180313, end: 20180514
  34. PREDNISOLONE. [Suspect]
     Active Substance: PREDNISOLONE
     Dosage: 1 MG/DAY, UNKNOWN FREQ.
     Route: 048
     Dates: start: 20180515
  35. ZANTAC [Concomitant]
     Active Substance: RANITIDINE HYDROCHLORIDE
     Indication: PROPHYLAXIS
     Dosage: 150 MG/DAY, UNKNOWN FREQ.
     Route: 048
  36. BENET [Concomitant]
     Active Substance: RISEDRONATE SODIUM
     Indication: PROPHYLAXIS
     Route: 048
     Dates: start: 20140514, end: 20170306
  37. PREDONINE [Concomitant]
     Active Substance: PREDNISOLONE
     Dosage: 15 MG/DAY, UNKNOWN FREQ.
     Route: 048
     Dates: start: 20170707, end: 20170830
  38. FUROSEMIDE. [Concomitant]
     Active Substance: FUROSEMIDE
     Indication: LUPUS NEPHRITIS
     Dosage: 20 MG/DAY, UNKNOWN FREQ.
     Route: 048
     Dates: start: 20170316, end: 20170618
  39. LASIX [Concomitant]
     Active Substance: FUROSEMIDE
     Indication: PLEURISY
     Dosage: 20 MG/DAY, UNKNOWN FREQ.
     Route: 048
     Dates: start: 20170106
  40. LASIX [Concomitant]
     Active Substance: FUROSEMIDE
     Dosage: 20 MG/DAY, UNKNOWN FREQ.
     Route: 048
     Dates: start: 20170209, end: 20170306
  41. DIOVAN [Concomitant]
     Active Substance: VALSARTAN
     Indication: PRODUCT USED FOR UNKNOWN INDICATION
     Dosage: 40 MG/DAY, UNKNOWN FREQ.
     Route: 048
  42. PREDNISOLONE. [Suspect]
     Active Substance: PREDNISOLONE
     Dosage: 14 MG/DAY, UNKNOWN FREQ.
     Route: 048
     Dates: start: 20090910
  43. PREDNISOLONE. [Suspect]
     Active Substance: PREDNISOLONE
     Dosage: 22.5 MG/DAY, UNKNOWN FREQ.
     Route: 048
     Dates: start: 20121219
  44. PREDNISOLONE. [Suspect]
     Active Substance: PREDNISOLONE
     Dosage: 17 MG/DAY, UNKNOWN FREQ.
     Route: 048
     Dates: start: 20130513
  45. BAYASPIRIN [Suspect]
     Active Substance: ASPIRIN
     Indication: PRODUCT USED FOR UNKNOWN INDICATION
     Dosage: 100 MG/DAY, UNKNOWN FREQ.
     Route: 048
  46. FERROMIA [Concomitant]
     Active Substance: SODIUM FERROUS CITRATE
     Indication: IRON DEFICIENCY ANAEMIA
     Route: 048
     Dates: start: 20150410
  47. PREDONINE [Concomitant]
     Active Substance: PREDNISOLONE
     Dosage: 12.5 MG/DAY, UNKNOWN FREQ.
     Route: 048
     Dates: start: 20170831, end: 20171103
  48. PREDONINE [Concomitant]
     Active Substance: PREDNISOLONE
     Dosage: 9 MG/DAY, UNKNOWN FREQ.
     Route: 048
     Dates: start: 20180108, end: 20180109

REACTIONS (6)
  - Iron deficiency anaemia [Recovering/Resolving]
  - Parotid abscess [Recovered/Resolved]
  - Cholecystitis acute [Recovered/Resolved]
  - Anaemia [Not Recovered/Not Resolved]
  - Cholelithiasis [Recovered/Resolved]
  - Pleurisy [Recovering/Resolving]

NARRATIVE: CASE EVENT DATE: 20150410
